FAERS Safety Report 9502861 (Version 1)
Quarter: 2013Q3

REPORT INFORMATION
  Report Type: Spontaneous
  Country: FR (occurrence: FR)
  Receive Date: 20130906
  Receipt Date: 20130906
  Transmission Date: 20140515
  Serious: Yes (Other)
  Sender: FDA-Public Use
  Company Number: FR-UCBSA-096347

PATIENT
  Age: 38 Year
  Sex: Female

DRUGS (2)
  1. KEPPRA [Suspect]
     Indication: CONVULSION
     Dosage: 1.5G DAILY
     Route: 048
     Dates: start: 20120418, end: 20130708
  2. DEPAKINE [Concomitant]
     Indication: CONVULSION
     Dosage: DAILY
     Route: 048
     Dates: end: 201204

REACTIONS (2)
  - Abortion spontaneous [Recovered/Resolved]
  - Exposure during pregnancy [Recovered/Resolved]
